FAERS Safety Report 9253518 (Version 1)
Quarter: 2013Q2

REPORT INFORMATION
  Report Type: Spontaneous
  Country: US (occurrence: US)
  Receive Date: 20130425
  Receipt Date: 20130425
  Transmission Date: 20140414
  Serious: No
  Sender: FDA-Public Use
  Company Number: US-009507513-1304USA014496

PATIENT
  Sex: Male

DRUGS (1)
  1. SAPHRIS [Suspect]
     Dosage: UNK
     Route: 060
     Dates: end: 201304

REACTIONS (3)
  - Inflammation [Recovering/Resolving]
  - Blister [Recovering/Resolving]
  - Application site reaction [Recovering/Resolving]
